FAERS Safety Report 19881941 (Version 2)
Quarter: 2021Q4

REPORT INFORMATION
  Report Type: Report from Study
  Country: CA (occurrence: CA)
  Receive Date: 20210925
  Receipt Date: 20211105
  Transmission Date: 20220303
  Serious: Yes (Death, Other)
  Sender: FDA-Public Use
  Company Number: CA-ABBVIE-21K-028-4094657-00

PATIENT
  Sex: Male
  Weight: 110 kg

DRUGS (2)
  1. LUPRON DEPOT [Suspect]
     Active Substance: LEUPROLIDE ACETATE
     Indication: Salivary gland cancer
     Route: 030
     Dates: start: 20210817
  2. BICALUTAMIDE [Concomitant]
     Active Substance: BICALUTAMIDE
     Indication: Salivary gland cancer

REACTIONS (14)
  - Malignant neoplasm progression [Fatal]
  - Dyspnoea [Fatal]
  - Headache [Fatal]
  - Nausea [Fatal]
  - Cough [Fatal]
  - Vision blurred [Fatal]
  - Metastases to central nervous system [Unknown]
  - Lung disorder [Unknown]
  - Salivary gland cancer [Unknown]
  - Nasal sinus cancer [Unknown]
  - Neoplasm malignant [Unknown]
  - Off label use [Unknown]
  - Fatigue [Unknown]
  - Lung disorder [Unknown]

NARRATIVE: CASE EVENT DATE: 20210101
